FAERS Safety Report 8390337-6 (Version None)
Quarter: 2012Q2

REPORT INFORMATION
  Report Type: 
  Country: None (occurrence: None)
  Receive Date: 20120529
  Receipt Date: 20120518
  Transmission Date: 20120825
  Serious: Yes (Hospitalization)
  Sender: FDA-Public Use
  Company Number: JP-VERTEX PHARMACEUTICALS INC.-AE-2012-005168

PATIENT
  Age: 64 Year
  Sex: Female

DRUGS (7)
  1. RIBAVIRIN [Concomitant]
     Route: 048
     Dates: start: 20120312, end: 20120325
  2. PEGINTERFERON ALFA-2A [Concomitant]
     Indication: HEPATITIS C
     Route: 051
     Dates: start: 20120214, end: 20120329
  3. TELAVIC (TELAPREVIR) [Suspect]
     Indication: HEPATITIS C
     Route: 048
     Dates: start: 20120214, end: 20120318
  4. TELAVIC (TELAPREVIR) [Suspect]
     Route: 048
     Dates: start: 20120319, end: 20120329
  5. RIBAVIRIN [Concomitant]
     Route: 048
     Dates: start: 20120326, end: 20120329
  6. RIBAVIRIN [Concomitant]
     Indication: HEPATITIS C
     Route: 048
     Dates: start: 20120214, end: 20120311
  7. SELBEX [Concomitant]
     Route: 048
     Dates: start: 20120214, end: 20120328

REACTIONS (1)
  - ERYTHEMA MULTIFORME [None]
